FAERS Safety Report 7030613-2 (Version None)
Quarter: 2010Q4

REPORT INFORMATION
  Report Type: 
  Country: None (occurrence: None)
  Receive Date: 20101006
  Receipt Date: 20100927
  Transmission Date: 20110411
  Serious: Yes (Other)
  Sender: FDA-Public Use
  Company Number: CA-ABBOTT-10P-028-0668827-00

PATIENT
  Sex: Female

DRUGS (5)
  1. HUMIRA [Suspect]
     Indication: RHEUMATOID ARTHRITIS
     Route: 058
     Dates: start: 20050826, end: 20100730
  2. METHOTERAXATE [Concomitant]
     Indication: PRODUCT USED FOR UNKNOWN INDICATION
     Route: 048
  3. MONOCOR [Concomitant]
     Indication: HYPERTENSION
     Route: 048
  4. FOLIC ACID [Concomitant]
     Indication: PRODUCT USED FOR UNKNOWN INDICATION
     Dosage: 1 TO 2 TIMES
     Route: 048
  5. ATACAND [Concomitant]
     Indication: HYPERTENSION
     Route: 048

REACTIONS (4)
  - ABDOMINAL PAIN [None]
  - ENDOMETRIOSIS [None]
  - MENORRHAGIA [None]
  - UTERINE LEIOMYOMA [None]
